FAERS Safety Report 7345072-X (Version None)
Quarter: 2011Q1

REPORT INFORMATION
  Report Type: 
  Country: None (occurrence: None)
  Receive Date: 20110310
  Receipt Date: 20110301
  Transmission Date: 20110831
  Serious: Yes (Hospitalization, Other)
  Sender: FDA-Public Use
  Company Number: US-ELI_LILLY_AND_COMPANY-US201103001029

PATIENT
  Sex: Female

DRUGS (14)
  1. LISINOPRIL [Concomitant]
     Dosage: 10 MG, DAILY (1/D)
  2. ASPIRIN [Concomitant]
     Dosage: 81 MG, DAILY (1/D)
  3. VITAMIN D [Concomitant]
     Dosage: 1000 MG, DAILY (1/D)
  4. SIMVASTATIN [Concomitant]
     Dosage: 40 MG, DAILY (1/D)
  5. EFFEXOR XR [Concomitant]
     Dosage: 75 MG, DAILY (1/D)
  6. NOVOLOG [Concomitant]
  7. LANTUS [Concomitant]
     Dosage: UNK, DAILY (1/D)
  8. CALCIUM [Concomitant]
     Dosage: 1200 MG, DAILY (1/D)
  9. FORTEO [Suspect]
     Indication: OSTEOPOROSIS
     Dosage: 20 UG, DAILY (1/D)
     Dates: start: 20101025
  10. METOPROLOL TARTRATE [Concomitant]
     Dosage: 0.5 D/F, 2/D
  11. MULTI-VITAMIN [Concomitant]
     Dosage: UNK, DAILY (1/D)
  12. METFORMIN [Concomitant]
     Dosage: 1000 MG, 2/D
  13. FUROSEMIDE [Concomitant]
     Dosage: 20 MG, DAILY (1/D)
  14. ALPRAZOLAM [Concomitant]
     Dosage: 25 MG, DAILY (1/D)

REACTIONS (1)
  - BREAST CANCER IN SITU [None]
